FAERS Safety Report 25665490 (Version 1)
Quarter: 2025Q3

REPORT INFORMATION
  Report Type: Spontaneous
  Country: CN (occurrence: CN)
  Receive Date: 20250811
  Receipt Date: 20250811
  Transmission Date: 20251020
  Serious: Yes (Other)
  Sender: Kenvue
  Company Number: CN-KENVUE-20250802740

PATIENT

DRUGS (2)
  1. CHILDRENS MOTRIN [Suspect]
     Active Substance: IBUPROFEN
     Indication: Pyrexia
     Dosage: 4 MILLILITER, FOUR TIME A DAY (Q6H)
     Route: 048
     Dates: start: 20250717, end: 20250719
  2. MONTMORILLONITE [Concomitant]
     Active Substance: MONTMORILLONITE
     Indication: Diarrhoea
     Dosage: 1.5 GRAM, THRICE A DAY
     Route: 048
     Dates: start: 20250717, end: 20250719

REACTIONS (1)
  - Cytopenia [Recovered/Resolved]

NARRATIVE: CASE EVENT DATE: 20250719
